FAERS Safety Report 5444676-9 (Version None)
Quarter: 2007Q3

REPORT INFORMATION
  Report Type: 
  Country: None (occurrence: None)
  Receive Date: 20070906
  Receipt Date: 20070312
  Transmission Date: 20080115
  Serious: No
  Sender: FDA-Public Use
  Company Number: A0637045A

PATIENT
  Age: 74 Year
  Sex: Female

DRUGS (6)
  1. REQUIP [Suspect]
     Indication: RESTLESS LEGS SYNDROME
     Dosage: 1MG AT NIGHT
     Route: 048
     Dates: start: 20060901
  2. LYRICA [Suspect]
     Indication: DRUG USE FOR UNKNOWN INDICATION
     Dosage: 50MG TWICE PER DAY
     Route: 048
  3. DIGOXIN [Concomitant]
  4. TOPROL-XL [Concomitant]
  5. CLONOPIN [Concomitant]
  6. ELAVIL [Concomitant]

REACTIONS (5)
  - DRUG INEFFECTIVE [None]
  - DRUG INTERACTION [None]
  - DYSPEPSIA [None]
  - SOMNOLENCE [None]
  - STOMACH DISCOMFORT [None]
